FAERS Safety Report 15634339 (Version 15)
Quarter: 2019Q2

REPORT INFORMATION
  Report Type: Report from Study
  Country: CA (occurrence: CA)
  Receive Date: 20181119
  Receipt Date: 20190628
  Transmission Date: 20190711
  Serious: Yes (Hospitalization, Other)
  Sender: FDA-Public Use
  Company Number: PHHY2013CA039945

PATIENT
  Age: 51 Year
  Sex: Male

DRUGS (7)
  1. SANDOSTATIN LAR DEPOT [Suspect]
     Active Substance: OCTREOTIDE ACETATE
     Dosage: 30 MG, Q3W
     Route: 030
     Dates: start: 20150105
  2. SANDOSTATIN LAR DEPOT [Suspect]
     Active Substance: OCTREOTIDE ACETATE
     Dosage: 40 MG, Q3W
     Route: 030
  3. SYNTHROID [Concomitant]
     Active Substance: LEVOTHYROXINE SODIUM
     Indication: PRODUCT USED FOR UNKNOWN INDICATION
     Dosage: 1 DF, QD
     Route: 048
  4. SYNTHROID [Concomitant]
     Active Substance: LEVOTHYROXINE SODIUM
     Dosage: 2 DF, QD
     Route: 048
     Dates: start: 20180704
  5. SANDOSTATIN LAR DEPOT [Suspect]
     Active Substance: OCTREOTIDE ACETATE
     Indication: NEUROENDOCRINE TUMOUR
     Dosage: 40 MG, Q3W
     Route: 030
     Dates: start: 20130312
  6. SANDOSTATIN LAR DEPOT [Suspect]
     Active Substance: OCTREOTIDE ACETATE
     Dosage: 20 MG, Q3W
     Route: 030
     Dates: start: 20130617
  7. SANDOSTATIN LAR DEPOT [Suspect]
     Active Substance: OCTREOTIDE ACETATE
     Dosage: 30 MG, UNK
     Route: 030
     Dates: start: 201603

REACTIONS (27)
  - Blood pressure increased [Unknown]
  - Malignant neoplasm progression [Unknown]
  - Skin warm [Unknown]
  - Type 2 diabetes mellitus [Unknown]
  - Gastrooesophageal reflux disease [Recovering/Resolving]
  - Blood glucose increased [Unknown]
  - Inappropriate schedule of product administration [Unknown]
  - Fatigue [Unknown]
  - Neuroendocrine tumour [Unknown]
  - Arthralgia [Unknown]
  - Headache [Unknown]
  - Diarrhoea [Unknown]
  - Incorrect dose administered [Unknown]
  - Erythema [Unknown]
  - Flushing [Unknown]
  - Injection site discomfort [Unknown]
  - Sensation of foreign body [Unknown]
  - Diverticulum [Unknown]
  - Pain in extremity [Unknown]
  - Oxygen saturation abnormal [Unknown]
  - Lung infection [Recovered/Resolved]
  - Malaise [Unknown]
  - Dysphagia [Unknown]
  - Blood calcitonin increased [Unknown]
  - Large intestine polyp [Unknown]
  - Oxygen saturation decreased [Unknown]
  - Injection site mass [Unknown]

NARRATIVE: CASE EVENT DATE: 20130510
